FAERS Safety Report 4722551-2 (Version None)
Quarter: 2005Q3

REPORT INFORMATION
  Report Type: 
  Country: None (occurrence: None)
  Receive Date: 20050722
  Receipt Date: 20040507
  Transmission Date: 20060218
  Serious: Yes (Life-Threatening, Hospitalization)
  Sender: FDA-Public Use
  Company Number: 2004CG00903

PATIENT
  Age: 28923 Day
  Sex: Male
  Weight: 95 kg

DRUGS (21)
  1. IRESSA [Suspect]
     Indication: LUNG NEOPLASM MALIGNANT
     Route: 048
     Dates: start: 20040115, end: 20040506
  2. DOCETAXEL [Suspect]
     Indication: LUNG NEOPLASM MALIGNANT
     Route: 042
     Dates: start: 20040115, end: 20040429
  3. CORDARONE [Suspect]
     Indication: ANGINA PECTORIS
     Route: 048
     Dates: start: 20020101, end: 20040511
  4. ASPEGIC 325 [Concomitant]
     Indication: ANGINA PECTORIS
     Route: 048
  5. CLONAZEPAM [Concomitant]
     Indication: INSOMNIA
     Route: 048
     Dates: start: 20020101
  6. MODIURETIC [Concomitant]
     Indication: HYPERTENSION
     Dates: start: 19930101
  7. TAHOR [Concomitant]
     Indication: HYPERCHOLESTEROLAEMIA
     Dates: start: 19980101
  8. RAMIPRIL [Concomitant]
     Indication: HYPERTENSION
  9. MEDROL [Concomitant]
     Indication: PREMEDICATION
     Dates: start: 20040114, end: 20040116
  10. MEDROL [Concomitant]
     Dates: start: 20040204, end: 20040206
  11. MEDROL [Concomitant]
     Dates: start: 20040225, end: 20040227
  12. MEDROL [Concomitant]
     Dates: start: 20040317, end: 20040319
  13. MEDROL [Concomitant]
     Dates: start: 20040407, end: 20040409
  14. MEDROL [Concomitant]
     Dates: start: 20040428, end: 20040430
  15. ONDANSETRON [Concomitant]
     Indication: PREMEDICATION
     Dates: start: 20040115, end: 20040115
  16. ONDANSETRON [Concomitant]
     Dates: start: 20040205, end: 20040205
  17. ONDANSETRON [Concomitant]
     Dates: start: 20040226, end: 20040226
  18. ONDANSETRON [Concomitant]
     Dates: start: 20040318, end: 20040318
  19. ONDANSETRON [Concomitant]
     Dates: start: 20040408, end: 20040408
  20. ONDANSETRON [Concomitant]
     Dates: start: 20040429, end: 20040429
  21. TARDYFERON [Concomitant]
     Indication: ANAEMIA
     Dates: start: 20040429

REACTIONS (3)
  - ANAEMIA [None]
  - LEUKOPENIA [None]
  - PNEUMONIA [None]
